FAERS Safety Report 17944492 (Version 1)
Quarter: 2020Q2

REPORT INFORMATION
  Report Type: Spontaneous
  Country: TW (occurrence: TW)
  Receive Date: 20200625
  Receipt Date: 20200625
  Transmission Date: 20200714
  Serious: Yes (Other)
  Sender: FDA-Public Use
  Company Number: TW-GALDERMA-TW2020029361

PATIENT
  Sex: Female

DRUGS (2)
  1. SOOLANTRA [Suspect]
     Active Substance: IVERMECTIN
     Indication: ROSACEA
     Dosage: 1%
     Route: 061
  2. SOOLANTRA [Suspect]
     Active Substance: IVERMECTIN
     Dosage: 1%
     Route: 061

REACTIONS (2)
  - Measles [Unknown]
  - Application site rash [Unknown]
